FAERS Safety Report 5340294-1 (Version None)
Quarter: 2007Q2

REPORT INFORMATION
  Report Type: 
  Country: None (occurrence: None)
  Receive Date: 20070405
  Receipt Date: 20070112
  Transmission Date: 20071010
  Serious: Yes (Other)
  Sender: FDA-Public Use
  Company Number: US200612002536

PATIENT
  Age: 42 Year
  Sex: Male
  Weight: 116.6 kg

DRUGS (4)
  1. CYMBALTA [Suspect]
     Indication: GENERALISED ANXIETY DISORDER
     Dates: start: 20060101, end: 20060614
  2. NEURONTIN [Concomitant]
  3. PROPECIA /SWE/ (FINASTERIDE) [Concomitant]
  4. XANAX /USA/ (ALPRAZOLAM) [Concomitant]

REACTIONS (1)
  - CONVULSION [None]
